FAERS Safety Report 6744757-3 (Version None)
Quarter: 2010Q2

REPORT INFORMATION
  Report Type: 
  Country: None (occurrence: None)
  Receive Date: 20100527
  Receipt Date: 20100525
  Transmission Date: 20101027
  Serious: Yes (Death, Hospitalization)
  Sender: FDA-Public Use
  Company Number: US-MPIJNJ-2010-02698

PATIENT
  Sex: Male
  Weight: 99.1 kg

DRUGS (2)
  1. VELCADE [Suspect]
     Indication: DRUG USE FOR UNKNOWN INDICATION
     Dosage: UNK
     Dates: end: 20100422
  2. VORINOSTAT [Suspect]
     Indication: DRUG USE FOR UNKNOWN INDICATION
     Dosage: 300 MG, CYCLIC
     Route: 048
     Dates: start: 20100503, end: 20100516

REACTIONS (2)
  - MYOCARDIAL INFARCTION [None]
  - PYREXIA [None]
